FAERS Safety Report 19854979 (Version 1)
Quarter: 2021Q3

REPORT INFORMATION
  Report Type: Spontaneous
  Country: GB (occurrence: GB)
  Receive Date: 20210920
  Receipt Date: 20210920
  Transmission Date: 20211014
  Serious: Yes (Hospitalization)
  Sender: FDA-Public Use
  Company Number: GB-TEVA-2021-GB-1953033

PATIENT
  Sex: Female

DRUGS (8)
  1. PARACETAMOL [Concomitant]
     Active Substance: ACETAMINOPHEN
     Dates: start: 20210307
  2. CO?AMOXICLAV [Concomitant]
     Active Substance: AMOXICILLIN\CLAVULANATE POTASSIUM
     Route: 042
     Dates: start: 20210307
  3. CLOPIDOGREL [Concomitant]
     Active Substance: CLOPIDOGREL BISULFATE
     Dosage: 75MG
     Dates: start: 20210307
  4. ATORVASTATIN [Concomitant]
     Active Substance: ATORVASTATIN
     Dosage: 40MG
     Dates: start: 20210307
  5. ASPIRIN. [Concomitant]
     Active Substance: ASPIRIN
     Dosage: 75MG
  6. LANSOPRAZOLE. [Concomitant]
     Active Substance: LANSOPRAZOLE
     Dosage: 30MG
     Dates: start: 20210307
  7. THYROXINE [Concomitant]
     Active Substance: LEVOTHYROXINE
     Dosage: 100MG
  8. DOXAZOSIN [Suspect]
     Active Substance: DOXAZOSIN MESYLATE
     Dosage: AT NIGHT
     Route: 065
     Dates: start: 202103, end: 202103

REACTIONS (3)
  - Muscle spasms [Unknown]
  - Blood pressure increased [Unknown]
  - Chest pain [Unknown]

NARRATIVE: CASE EVENT DATE: 202103
